FAERS Safety Report 11239994 (Version 1)
Quarter: 2015Q3

REPORT INFORMATION
  Report Type: Other
  Country: FR (occurrence: FR)
  Receive Date: 20150706
  Receipt Date: 20150706
  Transmission Date: 20151125
  Serious: Yes (Death, Congenital Anomaly, Other)
  Sender: FDA-Public Use
  Company Number: FR-APOTEX-2015AP010345

PATIENT
  Sex: Female

DRUGS (12)
  1. PAXIL [Suspect]
     Active Substance: PAROXETINE HYDROCHLORIDE
     Dosage: 20 MG, QD
     Dates: start: 20141216, end: 20141218
  2. SERESTA [Concomitant]
     Active Substance: OXAZEPAM
     Dosage: 2.5 DF, QD
     Route: 064
     Dates: start: 20141219, end: 20150105
  3. DEPAMIDE [Suspect]
     Active Substance: VALPROMIDE
     Dosage: 300 MG, QD
     Route: 064
     Dates: end: 20141215
  4. STILNOX [Suspect]
     Active Substance: ZOLPIDEM TARTRATE
     Indication: INSOMNIA
     Dosage: 10 MG, QD
     Route: 064
     Dates: end: 20141216
  5. PAXIL [Suspect]
     Active Substance: PAROXETINE HYDROCHLORIDE
     Indication: PRODUCT USED FOR UNKNOWN INDICATION
     Dosage: 20 MG, BID
     Route: 064
     Dates: end: 20141216
  6. ALPRAZOLAM. [Concomitant]
     Active Substance: ALPRAZOLAM
     Indication: PRODUCT USED FOR UNKNOWN INDICATION
     Dosage: 0.25 MG, TID
     Route: 064
     Dates: start: 20141216, end: 20141219
  7. PAXIL [Suspect]
     Active Substance: PAROXETINE HYDROCHLORIDE
     Dosage: 0.5 DF, QD
     Dates: start: 20141219, end: 20150105
  8. SERESTA [Concomitant]
     Active Substance: OXAZEPAM
     Indication: PRODUCT USED FOR UNKNOWN INDICATION
     Dosage: 10 MG, QD
     Route: 064
     Dates: start: 20141217, end: 20141219
  9. SPECIFOLDINE [Concomitant]
     Indication: PRODUCT USED FOR UNKNOWN INDICATION
     Dosage: 0.4 MG, QD
     Route: 064
     Dates: start: 20141216, end: 20150127
  10. DEPAMIDE [Suspect]
     Active Substance: VALPROMIDE
     Indication: PRODUCT USED FOR UNKNOWN INDICATION
     Dosage: 300 MG, BID
     Route: 064
     Dates: start: 20141122, end: 20141126
  11. SERESTA [Concomitant]
     Active Substance: OXAZEPAM
     Dosage: 3 DF, UNK
     Route: 064
     Dates: start: 20150105
  12. DONORMYL                           /00886901/ [Concomitant]
     Active Substance: DOXYLAMINE SUCCINATE\SODIUM BROMIDE\SODIUM PHOSPHATE, DIBASIC, ANHYDROUS\SODIUM SULFATE
     Indication: PRODUCT USED FOR UNKNOWN INDICATION
     Dosage: 0.5 DF, QD
     Route: 064
     Dates: start: 20141231, end: 20150110

REACTIONS (6)
  - Talipes [Fatal]
  - Congenital central nervous system anomaly [Fatal]
  - Spina bifida [Fatal]
  - Abortion induced [Fatal]
  - Cerebral ventricle dilatation [Fatal]
  - Foetal exposure during pregnancy [Unknown]

NARRATIVE: CASE EVENT DATE: 2015
